FAERS Safety Report 10862547 (Version 1)
Quarter: 2015Q1

REPORT INFORMATION
  Report Type: Spontaneous
  Country: US (occurrence: None)
  Receive Date: 20150219
  Receipt Date: 20150219
  Transmission Date: 20150721
  Serious: Yes (Other)
  Sender: FDA-Public Use
  Company Number: None

PATIENT
  Age: 56 Year
  Sex: Female

DRUGS (8)
  1. ATENOLOL. [Concomitant]
     Active Substance: ATENOLOL
  2. SUMATRIPTAN. [Concomitant]
     Active Substance: SUMATRIPTAN
  3. AMPYRA [Suspect]
     Active Substance: DALFAMPRIDINE
     Indication: NYSTAGMUS
     Route: 048
     Dates: start: 201312, end: 201401
  4. METFORMIN [Concomitant]
     Active Substance: METFORMIN HYDROCHLORIDE
  5. MECLIZINE [Concomitant]
     Active Substance: MECLIZINE\MECLIZINE HYDROCHLORIDE
  6. ONDANSETRON [Concomitant]
     Active Substance: ONDANSETRON
  7. RITUXAN [Concomitant]
     Active Substance: RITUXIMAB
  8. DIAZEPAM. [Concomitant]
     Active Substance: DIAZEPAM

REACTIONS (4)
  - Insomnia [None]
  - Back pain [None]
  - Drug ineffective [None]
  - Gait disturbance [None]

NARRATIVE: CASE EVENT DATE: 20131211
